FAERS Safety Report 9740364 (Version 1)
Quarter: 2013Q4

REPORT INFORMATION
  Report Type: Spontaneous
  Country: PL (occurrence: PL)
  Receive Date: 20131209
  Receipt Date: 20131209
  Transmission Date: 20140711
  Serious: Yes (Other)
  Sender: FDA-Public Use
  Company Number: PL-B.I. PHARMACEUTICALS,INC./RIDGEFIELD-2013-BI-40072PN

PATIENT
  Sex: Female
  Weight: 62 kg

DRUGS (5)
  1. PRADAXA [Suspect]
     Indication: ATRIAL FIBRILLATION
     Dosage: 300 MG
     Route: 048
     Dates: start: 20131107
  2. PRADAXA [Suspect]
     Indication: ATRIAL FLUTTER
     Dosage: 220 MG
     Route: 048
  3. BETALOC ZOC [Concomitant]
     Indication: MYOCARDIAL ISCHAEMIA
     Dosage: 50-0-25 MILLIGRAM
     Route: 048
  4. POLPRIL [Concomitant]
     Indication: HYPERTENSIVE HEART DISEASE
     Dosage: 5 MG
     Route: 048
  5. STORVAS 10MG [Concomitant]
     Indication: MYOCARDIAL ISCHAEMIA
     Dosage: 10 MG
     Route: 048

REACTIONS (1)
  - Balance disorder [Unknown]
